FAERS Safety Report 23994135 (Version 4)
Quarter: 2024Q2

REPORT INFORMATION
  Report Type: Spontaneous
  Country: SI (occurrence: SI)
  Receive Date: 20240620
  Receipt Date: 20240621
  Transmission Date: 20240716
  Serious: Yes (Hospitalization)
  Sender: FDA-Public Use
  Company Number: SI-ROCHE-3580161

PATIENT
  Sex: Male
  Weight: 1.775 kg

DRUGS (12)
  1. METHYLPREDNISOLONE SODIUM SUCCINATE [Suspect]
     Active Substance: METHYLPREDNISOLONE SODIUM SUCCINATE
     Indication: COVID-19
     Dosage: 80 MG QD IV. WITH SLOW TAPER IN THE NEXT FOUR WEEKS.
     Route: 064
     Dates: start: 202201
  2. DALTEPARIN SODIUM [Suspect]
     Active Substance: DALTEPARIN SODIUM
     Indication: Thrombosis prophylaxis
     Dosage: UNK
     Route: 064
  3. CASIRIVIMAB\IMDEVIMAB [Suspect]
     Active Substance: CASIRIVIMAB\IMDEVIMAB
     Indication: COVID-19
     Dosage: 2400 MG SINGLE DOSE
     Route: 064
     Dates: start: 20220107
  4. CLOTRIMAZOLE [Suspect]
     Active Substance: CLOTRIMAZOLE
     Indication: Candida infection
     Dosage: UNK
     Route: 064
  5. CLOTRIMAZOLE [Suspect]
     Active Substance: CLOTRIMAZOLE
     Indication: Enterococcal infection
  6. DEXAMETHASONE [Suspect]
     Active Substance: DEXAMETHASONE
     Indication: COVID-19
     Dosage: 6 MG QD
     Route: 064
  7. FUSIDIC ACID [Suspect]
     Active Substance: FUSIDIC ACID
     Indication: Candida infection
     Dosage: UNK
     Route: 064
  8. FUSIDIC ACID [Suspect]
     Active Substance: FUSIDIC ACID
     Indication: Enterococcal infection
  9. FLUCLOXACILLIN [Suspect]
     Active Substance: FLUCLOXACILLIN
     Indication: Antibiotic therapy
     Dosage: UNK
     Route: 064
     Dates: start: 20220110
  10. NITRIC OXIDE [Suspect]
     Active Substance: NITRIC OXIDE
     Indication: Oxygen therapy
     Dosage: UNK
     Route: 064
     Dates: start: 202201
  11. PIPERACILLIN SODIUM\TAZOBACTAM SODIUM [Suspect]
     Active Substance: PIPERACILLIN SODIUM\TAZOBACTAM SODIUM
     Indication: Antibiotic therapy
     Dosage: UNK
     Route: 064
     Dates: start: 20220107
  12. TOCILIZUMAB [Suspect]
     Active Substance: TOCILIZUMAB
     Indication: COVID-19
     Dosage: 640 MG IV., 8 MG/KG OF PRE-PREGNANCY BODY WEIGHT
     Route: 064
     Dates: start: 202201

REACTIONS (5)
  - Foetal exposure during pregnancy [Unknown]
  - Foetal growth restriction [Unknown]
  - Small for dates baby [Unknown]
  - Premature baby [Unknown]
  - Low birth weight baby [Unknown]
